FAERS Safety Report 13741944 (Version 2)
Quarter: 2017Q3

REPORT INFORMATION
  Report Type: Spontaneous
  Country: CA (occurrence: CA)
  Receive Date: 20170711
  Receipt Date: 20170720
  Transmission Date: 20171127
  Serious: Yes (Hospitalization, Other)
  Sender: FDA-Public Use
  Company Number: CA-ABBVIE-17K-028-2030308-00

PATIENT
  Age: 55 Year
  Sex: Male
  Weight: 84 kg

DRUGS (3)
  1. PLAQUENIL [Suspect]
     Active Substance: HYDROXYCHLOROQUINE SULFATE
     Indication: RHEUMATOID ARTHRITIS
     Route: 065
     Dates: start: 2003
  2. HUMIRA [Suspect]
     Active Substance: ADALIMUMAB
     Indication: PRODUCT USED FOR UNKNOWN INDICATION
     Route: 058
     Dates: start: 2005, end: 201705
  3. METHOTREXATE. [Suspect]
     Active Substance: METHOTREXATE
     Indication: RHEUMATOID ARTHRITIS
     Route: 065
     Dates: start: 2005, end: 201705

REACTIONS (10)
  - Drug intolerance [Unknown]
  - Respiratory disorder [Unknown]
  - Pneumonitis [Recovered/Resolved with Sequelae]
  - Pulmonary fibrosis [Not Recovered/Not Resolved]
  - Synovitis [Unknown]
  - Hypersensitivity [Unknown]
  - Pneumocystis jirovecii infection [Recovered/Resolved]
  - X-ray abnormal [Unknown]
  - Immunosuppression [Unknown]
  - Drug ineffective [Unknown]

NARRATIVE: CASE EVENT DATE: 2010
